FAERS Safety Report 24361173 (Version 2)
Quarter: 2024Q3

REPORT INFORMATION
  Report Type: Spontaneous
  Country: ES (occurrence: ES)
  Receive Date: 20240925
  Receipt Date: 20240927
  Transmission Date: 20241016
  Serious: Yes (Other)
  Sender: JOHNSON AND JOHNSON
  Company Number: None

PATIENT
  Age: 61 Year
  Sex: Male
  Weight: 87 kg

DRUGS (13)
  1. TAPENTADOL HYDROCHLORIDE [Suspect]
     Active Substance: TAPENTADOL HYDROCHLORIDE
     Indication: Spondylitis
     Dosage: 50 MILLIGRAM, EVERY 12 HRS
     Route: 048
  2. TOPAMAX [Suspect]
     Active Substance: TOPIRAMATE
     Indication: Obesity
     Dosage: 50 MILLIGRAM, 2/DAY
     Route: 048
     Dates: start: 20130730
  3. TOPAMAX [Suspect]
     Active Substance: TOPIRAMATE
     Dosage: 100 MILLIGRAM, EVERY 12 HRS
     Route: 048
     Dates: start: 20130730
  4. ATORVASTATIN [Interacting]
     Active Substance: ATORVASTATIN
     Indication: Dyslipidaemia
     Dosage: 30 MILLIGRAM, 1/DAY
     Route: 002
     Dates: start: 20240806, end: 20240830
  5. ACETAMINOPHEN\TRAMADOL HYDROCHLORIDE [Suspect]
     Active Substance: ACETAMINOPHEN\TRAMADOL HYDROCHLORIDE
     Indication: Spondylolysis
     Dosage: 1 DOSAGE FORM, EVERY 8 HRS
     Route: 048
     Dates: start: 20150812
  6. SACUBITRIL\VALSARTAN [Concomitant]
     Active Substance: SACUBITRIL\VALSARTAN
     Indication: Cardiac failure congestive
     Dosage: 1 DOSAGE FORM, EVERY 12 HRS
     Route: 048
     Dates: start: 20240313
  7. XARELTO [Concomitant]
     Active Substance: RIVAROXABAN
     Indication: Cardiac failure congestive
     Dosage: 20 MILLIGRAM, 1/DAY
     Route: 048
     Dates: start: 20240313
  8. ALDACTONE [Concomitant]
     Active Substance: SPIRONOLACTONE
     Indication: Cardiac failure congestive
     Dosage: 25 MILLIGRAM, 1/DAY
     Route: 048
     Dates: start: 20240314
  9. PANTOPRAZOLE SODIUM [Concomitant]
     Active Substance: PANTOPRAZOLE SODIUM
     Indication: Product used for unknown indication
     Dosage: 40 MILLIGRAM, 1/DAY
     Route: 048
     Dates: start: 20120705
  10. BISOPROLOL FUMARATE [Concomitant]
     Active Substance: BISOPROLOL FUMARATE
     Indication: Coronary artery bypass
     Dosage: 2.5 MILLIGRAM, 1/DAY
     Route: 048
     Dates: start: 20240202
  11. CLOPIDOGREL TARBIS [Concomitant]
     Indication: Cardiac failure congestive
     Dosage: 75 MILLIGRAM, 1/DAY
     Route: 048
     Dates: start: 20240314
  12. FUROSEMIDA COMBIX [Concomitant]
     Indication: Cardiac disorder
     Dosage: 20 MILLIGRAM, 2/DAY
     Route: 048
     Dates: start: 20240313
  13. SILODOSIN [Concomitant]
     Active Substance: SILODOSIN
     Indication: Haematuria
     Dosage: 8 MILLIGRAM, 1/DAY
     Route: 048
     Dates: start: 20240220

REACTIONS (3)
  - Hypersomnia [Recovered/Resolved]
  - Drug interaction [Recovered/Resolved]
  - Abdominal discomfort [Recovered/Resolved]

NARRATIVE: CASE EVENT DATE: 20240808
